FAERS Safety Report 5807093-5 (Version None)
Quarter: 2008Q3

REPORT INFORMATION
  Report Type: 
  Country: None (occurrence: None)
  Receive Date: 20080708
  Receipt Date: 20080630
  Transmission Date: 20090109
  Serious: Yes (Other)
  Sender: FDA-Public Use
  Company Number: SPV1-2008-01402

PATIENT
  Sex: Female

DRUGS (2)
  1. FOSRENOL [Suspect]
     Dosage: 750 MG, 3X/DAY: TID
  2. PRAVASTATIN [Concomitant]

REACTIONS (1)
  - RHABDOMYOLYSIS [None]
